FAERS Safety Report 4531257-4 (Version None)
Quarter: 2004Q4

REPORT INFORMATION
  Report Type: 
  Country: None (occurrence: None)
  Receive Date: 20041126
  Receipt Date: 20041013
  Transmission Date: 20050328
  Serious: Yes (Disabling, Other)
  Sender: FDA-Public Use
  Company Number: 140375USA

PATIENT
  Age: 63 Year
  Sex: Male

DRUGS (5)
  1. AMIODARONE HCL [Suspect]
     Indication: ARRHYTHMIA
     Dosage: 200 MILLIGRAM QD ORAL
     Route: 048
     Dates: start: 20040912, end: 20041009
  2. ATENOLOL [Concomitant]
  3. NORVASC [Concomitant]
  4. LIPITOR [Concomitant]
  5. PREDNISONE TAB [Concomitant]

REACTIONS (1)
  - BLINDNESS [None]
